FAERS Safety Report 18917662 (Version 1)
Quarter: 2021Q1

REPORT INFORMATION
  Report Type: Spontaneous
  Country: GB (occurrence: GB)
  Receive Date: 20210219
  Receipt Date: 20210219
  Transmission Date: 20210420
  Serious: Yes (Hospitalization)
  Sender: FDA-Public Use
  Company Number: GB-ALLERGAN-2107096US

PATIENT
  Sex: Female

DRUGS (3)
  1. BOTOX [Suspect]
     Active Substance: ONABOTULINUMTOXINA
     Indication: SKIN WRINKLING
     Dosage: UNK UNK, SINGLE
     Dates: start: 20201216, end: 20201216
  2. BOTOX [Suspect]
     Active Substance: ONABOTULINUMTOXINA
     Indication: SKIN WRINKLING
     Dosage: UNK UNK, SINGLE
     Dates: start: 20201216, end: 20201216
  3. JUVEDERM VOLIFT FILLERS [Suspect]
     Active Substance: HYALURONIC ACID\LIDOCAINE
     Indication: DERMAL FILLER INJECTION
     Dosage: UNK
     Dates: start: 20201203, end: 20201203

REACTIONS (7)
  - Discomfort [Unknown]
  - Pain [Unknown]
  - Lymphatic obstruction [Unknown]
  - Emotional distress [Unknown]
  - Inflammation [Recovering/Resolving]
  - Swelling face [Recovering/Resolving]
  - Facial asymmetry [Recovering/Resolving]

NARRATIVE: CASE EVENT DATE: 202012
